FAERS Safety Report 8928564 (Version 1)
Quarter: 2012Q4

REPORT INFORMATION
  Report Type: 
  Country: FR (occurrence: FR)
  Receive Date: 20121128
  Receipt Date: 20121128
  Transmission Date: 20130627
  Serious: Yes (Hospitalization)
  Sender: FDA-Public Use
  Company Number: PHHY2012FR107491

PATIENT
  Age: 29 Year
  Sex: Male

DRUGS (1)
  1. TEGRETOL [Suspect]
     Indication: FACIAL NEURALGIA
     Dosage: UNK
     Route: 048
     Dates: start: 20121004, end: 20121010

REACTIONS (4)
  - Febrile neutropenia [Recovered/Resolved]
  - Bicytopenia [Recovered/Resolved]
  - Thrombocytopenia [Recovered/Resolved]
  - Pyrexia [Recovered/Resolved]
